FAERS Safety Report 4698132-6 (Version None)
Quarter: 2005Q2

REPORT INFORMATION
  Report Type: 
  Country: None (occurrence: None)
  Receive Date: 20050621
  Receipt Date: 20050608
  Transmission Date: 20051028
  Serious: Yes (Other)
  Sender: FDA-Public Use
  Company Number: 2005087499

PATIENT
  Age: 93 Year
  Sex: Female

DRUGS (4)
  1. ZOLOFT [Suspect]
     Indication: DEPRESSION
     Dosage: 1/2 TABLET
     Dates: start: 20041001, end: 20050101
  2. DONEPEZIL HCL [Suspect]
     Indication: DEMENTIA
     Dates: start: 20050515
  3. ATIVAN [Suspect]
     Indication: ILL-DEFINED DISORDER
     Dates: start: 20041001
  4. ALL OTHER THERAPEUTIC PRODUCTS (ALL OTHER THERAPEUTIC PRODUCTS) [Concomitant]

REACTIONS (6)
  - COMA [None]
  - DECREASED APPETITE [None]
  - HALLUCINATIONS, MIXED [None]
  - INSOMNIA [None]
  - PARANOIA [None]
  - SEDATION [None]
